FAERS Safety Report 5285938-8 (Version None)
Quarter: 2007Q2

REPORT INFORMATION
  Report Type: 
  Country: None (occurrence: None)
  Receive Date: 20070404
  Receipt Date: 20070327
  Transmission Date: 20071010
  Serious: Yes (Hospitalization)
  Sender: FDA-Public Use
  Company Number: HQWYE910307FEB07

PATIENT
  Age: 70 Year
  Sex: Male

DRUGS (2)
  1. TYGACIL [Suspect]
     Indication: DECUBITUS ULCER
     Route: 065
  2. AVELOX [Suspect]
     Indication: DECUBITUS ULCER
     Dosage: 400 MG DAILY

REACTIONS (2)
  - COUGH [None]
  - INCISION SITE INFECTION [None]
